FAERS Safety Report 13073327 (Version 1)
Quarter: 2016Q4

REPORT INFORMATION
  Report Type: Spontaneous
  Country: US (occurrence: US)
  Receive Date: 20161229
  Receipt Date: 20161229
  Transmission Date: 20170207
  Serious: No
  Sender: FDA-Public Use
  Company Number: US-ASTRAZENECA-2016SF35616

PATIENT
  Sex: Female
  Weight: 113.4 kg

DRUGS (2)
  1. NEXIUM 24HR [Suspect]
     Active Substance: ESOMEPRAZOLE MAGNESIUM
     Indication: OESOPHAGEAL ACHALASIA
     Route: 048
  2. NEXIUM [Suspect]
     Active Substance: ESOMEPRAZOLE MAGNESIUM
     Indication: OESOPHAGEAL ACHALASIA
     Route: 048
     Dates: start: 2008

REACTIONS (4)
  - Oesophageal achalasia [Unknown]
  - Vocal cord disorder [Unknown]
  - Salivary hypersecretion [Unknown]
  - Aphonia [Unknown]
